FAERS Safety Report 22136014 (Version 1)
Quarter: 2023Q1

REPORT INFORMATION
  Report Type: Spontaneous
  Country: CN (occurrence: CN)
  Receive Date: 20230324
  Receipt Date: 20230324
  Transmission Date: 20230418
  Serious: Yes (Hospitalization, Other)
  Sender: FDA-Public Use
  Company Number: CN-009507513-2303CHN007057

PATIENT
  Age: 62 Year
  Sex: Male
  Weight: 60 kg

DRUGS (2)
  1. INVANZ [Suspect]
     Active Substance: ERTAPENEM SODIUM
     Indication: Urinary tract infection
     Dosage: 1 G, QD, IV DRIP
     Route: 041
     Dates: start: 20230302, end: 20230309
  2. MOXIFLOXACIN HYDROCHLORIDE [Suspect]
     Active Substance: MOXIFLOXACIN HYDROCHLORIDE
     Indication: Upper respiratory tract infection
     Dosage: 0.4 G, QD, ORAL
     Route: 048
     Dates: start: 20230306, end: 20230310

REACTIONS (8)
  - Neurotoxicity [Recovering/Resolving]
  - Upper respiratory tract infection [Unknown]
  - Chest discomfort [Unknown]
  - Palpitations [Unknown]
  - Depressed mood [Unknown]
  - Anxiety [Recovering/Resolving]
  - Disorganised speech [Unknown]
  - Tremor [Recovering/Resolving]

NARRATIVE: CASE EVENT DATE: 20230306
